FAERS Safety Report 21988186 (Version 1)
Quarter: 2023Q1

REPORT INFORMATION
  Report Type: Spontaneous
  Country: US (occurrence: US)
  Receive Date: 20230214
  Receipt Date: 20230214
  Transmission Date: 20230418
  Serious: No
  Sender: FDA-Public Use
  Company Number: US-JNJFOC-20230211850

PATIENT
  Age: 76 Year
  Sex: Female

DRUGS (2)
  1. IMODIUM [Suspect]
     Active Substance: LOPERAMIDE HYDROCHLORIDE
     Indication: Diarrhoea
     Dosage: 1 OR 2 DOSAGE FORMS
     Route: 065
     Dates: start: 2022
  2. IMODIUM [Suspect]
     Active Substance: LOPERAMIDE HYDROCHLORIDE
     Dosage: HALF A DOSAGE FORM
     Route: 065

REACTIONS (2)
  - Constipation [Unknown]
  - Incorrect dose administered [Unknown]
